FAERS Safety Report 8577965-X (Version None)
Quarter: 2012Q3

REPORT INFORMATION
  Report Type: 
  Country: None (occurrence: None)
  Receive Date: 20120725
  Receipt Date: 20120717
  Transmission Date: 20120928
  Serious: Yes (Hospitalization)
  Sender: FDA-Public Use
  Company Number: DSA_58598_2012

PATIENT
  Age: 31 Year
  Sex: Female
  Weight: 53.8 kg

DRUGS (6)
  1. RISPERIDONE [Suspect]
     Indication: HUNTINGTON'S DISEASE
     Dosage: 5 MG, 3MG IN THE MORNING AND 2MG AT NIGHT ORAL, 2 MG BID ORAL
     Route: 048
     Dates: start: 20120620, end: 20120702
  2. RISPERIDONE [Suspect]
     Indication: HUNTINGTON'S DISEASE
     Dosage: 5 MG, 3MG IN THE MORNING AND 2MG AT NIGHT ORAL, 2 MG BID ORAL
     Route: 048
     Dates: end: 20120619
  3. FLUOXETINE HCL [Concomitant]
  4. ACETAMINOPHEN [Concomitant]
  5. HYOSCINE HBR HYT [Concomitant]
  6. TETRABENAZINE (TETRABENAZINE) 25 MG [Suspect]
     Indication: HUNTINGTON'S DISEASE
     Dosage: 25 MG BID ORAL
     Route: 048
     Dates: end: 20120702

REACTIONS (3)
  - RHABDOMYOLYSIS [None]
  - NEUROLEPTIC MALIGNANT SYNDROME [None]
  - URINARY TRACT INFECTION [None]
